FAERS Safety Report 8040220-0 (Version None)
Quarter: 2012Q1

REPORT INFORMATION
  Report Type: 
  Country: None (occurrence: None)
  Receive Date: 20120111
  Receipt Date: 20111228
  Transmission Date: 20120608
  Serious: No
  Sender: FDA-Public Use
  Company Number: US-AMGEN-USASP2011069538

PATIENT
  Sex: Female

DRUGS (2)
  1. ENBREL [Suspect]
     Indication: RHEUMATOID ARTHRITIS
     Dosage: 50 MG, QWK
     Dates: start: 20050101, end: 20111001
  2. HUMIRA [Concomitant]
     Dosage: UNK

REACTIONS (5)
  - PNEUMONIA [None]
  - RHEUMATOID ARTHRITIS [None]
  - JOINT SWELLING [None]
  - ABDOMINAL PAIN UPPER [None]
  - INFLUENZA [None]
